FAERS Safety Report 15317476 (Version 1)
Quarter: 2018Q3

REPORT INFORMATION
  Report Type: Spontaneous
  Country: US (occurrence: US)
  Receive Date: 20180824
  Receipt Date: 20180824
  Transmission Date: 20181010
  Serious: Yes (Other)
  Sender: FDA-Public Use
  Company Number: US-GUERBET-US-20180210

PATIENT
  Age: 33 Week
  Sex: Female

DRUGS (2)
  1. OPTIRAY 320 [Suspect]
     Active Substance: IOVERSOL
     Indication: LYMPHANGIOGRAM
     Dosage: DAY OF LIFE 90
     Route: 027
  2. OPTIRAY 320 [Suspect]
     Active Substance: IOVERSOL
     Indication: VENOGRAM

REACTIONS (2)
  - Overdose [Recovered/Resolved]
  - Primary hypothyroidism [Recovered/Resolved]
